FAERS Safety Report 12626072 (Version 1)
Quarter: 2016Q3

REPORT INFORMATION
  Report Type: Spontaneous
  Country: DE (occurrence: DE)
  Receive Date: 20160805
  Receipt Date: 20160805
  Transmission Date: 20161109
  Serious: Yes (Hospitalization)
  Sender: FDA-Public Use
  Company Number: DE-TEVA-682364GER

PATIENT
  Age: 76 Year
  Sex: Male

DRUGS (6)
  1. DOXEPIN-RATIOPHARM FILMTABLETTEN [Suspect]
     Active Substance: DOXEPIN
     Indication: INSOMNIA
     Dosage: 50 MILLIGRAM DAILY;
     Route: 048
     Dates: start: 201601
  2. ALLOPURINOL. [Concomitant]
     Active Substance: ALLOPURINOL
  3. LERCANIDIPIN [Concomitant]
     Active Substance: LERCANIDIPINE
  4. DOXEPIN-RATIOPHARM FILMTABLETTEN [Suspect]
     Active Substance: DOXEPIN
     Dosage: 25 MILLIGRAM DAILY;
     Route: 048
     Dates: start: 201601
  5. RAMIPRIL. [Concomitant]
     Active Substance: RAMIPRIL
  6. SIMVABETA [Concomitant]
     Active Substance: SIMVASTATIN

REACTIONS (1)
  - Delirium [Not Recovered/Not Resolved]

NARRATIVE: CASE EVENT DATE: 20160720
